FAERS Safety Report 17993658 (Version 1)
Quarter: 2020Q3

REPORT INFORMATION
  Report Type: Spontaneous
  Country: US (occurrence: US)
  Receive Date: 20200707
  Receipt Date: 20200707
  Transmission Date: 20201103
  Serious: No
  Sender: FDA-Public Use
  Company Number: None

PATIENT
  Age: 70 Year
  Sex: Male
  Weight: 63 kg

DRUGS (16)
  1. REMDESIVIR (EUA) [Suspect]
     Active Substance: REMDESIVIR
     Indication: COVID-19
     Dosage: ?          OTHER FREQUENCY:ONCE;?
     Route: 042
     Dates: start: 20200703, end: 20200704
  2. ASPIRIN TABLET 325 MG [Concomitant]
     Dates: start: 20200629
  3. PRAMIPEXOLE (MIRAPEX) TABLET 0.375 MG [Concomitant]
     Dates: start: 20200629
  4. AMLODIPINE (NORVASC) TABLET 2.5 MG [Concomitant]
     Dates: start: 20200629
  5. FAMOTIDINE (PEPCID) 20 MG IN SODIUM CHLORIDE (PF) 0.9 % IV [Concomitant]
     Dates: start: 20200628
  6. GUAIFENESIN (MUCINEX) 12 HR TABLET 600 MG [Concomitant]
     Dates: start: 20200702
  7. DEXAMETHASONE (DECADRON) TABLET 6 MG [Concomitant]
     Dates: start: 20200702
  8. MIRTAZAPINE (REMERON) TABLET 45 MG [Concomitant]
     Dates: start: 20200628
  9. ATORVASTATIN (LIPITOR) TABLET 80 MG [Concomitant]
     Dates: start: 20200629
  10. CEFTRIAXONE (ROCEPHIN) 2 GM IN DEXTROSE 5 % 100 ML IVPB [Concomitant]
     Dates: start: 20200629, end: 20200705
  11. AZITHROMYCIN (ZITHROMAX) 500 MG IN DEXTROSE 5 % IN WATER (D5W) 250 ML [Concomitant]
     Dates: start: 20200629, end: 20200705
  12. ENOXAPARIN (LOVENOX) 40 MG/0.4 ML INJECTION 40 MG [Concomitant]
     Dates: start: 20200628
  13. TAMSULOSIN (FLOMAX) 24 HR CAPSULE 0.8 MG [Concomitant]
     Dates: start: 20200628
  14. THIAMINE MONONITRATE (VIT B1) TABLET 100 MG [Concomitant]
     Dates: start: 20200628
  15. ZINC SULFATE (ZINCATE) CAPSULE 220 MG [Concomitant]
     Dates: start: 20200628
  16. ASCORBIC ACID (VITAMIN C) (VITAMIN C) TABLET 500 MG [Concomitant]
     Dates: start: 20200629

REACTIONS (1)
  - Liver function test increased [None]

NARRATIVE: CASE EVENT DATE: 20200704
